FAERS Safety Report 8028821-7 (Version None)
Quarter: 2012Q1

REPORT INFORMATION
  Report Type: 
  Country: None (occurrence: None)
  Receive Date: 20120106
  Receipt Date: 20120105
  Transmission Date: 20120608
  Serious: Yes (Death)
  Sender: FDA-Public Use
  Company Number: JP-ABBOTT-12P-087-0889481-00

PATIENT
  Sex: Female
  Weight: 50.2 kg

DRUGS (12)
  1. HUMIRA [Suspect]
     Dates: start: 20101228, end: 20110502
  2. HUMIRA [Suspect]
     Dates: start: 20101213, end: 20101213
  3. POTASSIUM CHLORIDE [Concomitant]
     Indication: PRODUCT USED FOR UNKNOWN INDICATION
     Dosage: AFTER BREAKFAST AND SUPPER
     Route: 048
  4. CALCIUM LACTATE HYDRATE [Concomitant]
     Indication: OSTEOPOROSIS
     Dosage: AFTER EACH MEAL
     Route: 048
  5. VITAMIN A [Concomitant]
     Indication: PRODUCT USED FOR UNKNOWN INDICATION
     Dosage: AFTER EACH MEAL
     Route: 048
  6. MORPHINE HYDROCHLORIDE HYDRATE [Concomitant]
     Indication: PRODUCT USED FOR UNKNOWN INDICATION
     Dosage: EVERY SIX HOURS
     Route: 048
  7. HUMIRA [Suspect]
     Indication: CROHN'S DISEASE
     Route: 058
     Dates: start: 20101129, end: 20101129
  8. LOPERAMIDE HCL [Concomitant]
     Indication: CROHN'S DISEASE
     Route: 048
  9. KANAMYCIN SULFATE [Concomitant]
     Indication: HEPATIC CIRRHOSIS
     Dosage: AFTER EACH MEAL AND BEFORE BEDTIME
     Route: 048
  10. ALFACALCIDOL [Concomitant]
     Indication: OSTEOPOROSIS
     Dosage: AFTER SUPPER
     Route: 048
  11. RANITIDINE HYDROCHLORIDE [Concomitant]
     Indication: PRODUCT USED FOR UNKNOWN INDICATION
     Dosage: AFTER BREAKFAST AND SUPPER
     Route: 048
  12. TPN [Concomitant]
     Indication: CROHN'S DISEASE
     Dates: end: 20110605

REACTIONS (2)
  - OEDEMA [None]
  - HEPATIC CIRRHOSIS [None]
